FAERS Safety Report 5804030-4 (Version None)
Quarter: 2008Q3

REPORT INFORMATION
  Report Type: 
  Country: None (occurrence: None)
  Receive Date: 20080707
  Receipt Date: 20080623
  Transmission Date: 20090109
  Serious: Yes (Congenital Anomaly, Other)
  Sender: FDA-Public Use
  Company Number: GXKR2008GB05782

PATIENT
  Sex: Male
  Weight: 0.6 kg

DRUGS (6)
  1. LABETALOL HCL [Suspect]
     Dosage: TRANSPLACENTAL
     Route: 064
  2. ACETYLSALICYLIC ACID SRT [Concomitant]
  3. FERROUS SULPHATE (FERROUS SULFATE) [Concomitant]
  4. METHYLDOPA [Concomitant]
  5. NIFEDIPINE [Concomitant]
  6. ACETAMINOPHEN [Concomitant]

REACTIONS (3)
  - CAESAREAN SECTION [None]
  - FOETAL GROWTH RETARDATION [None]
  - PREGNANCY INDUCED HYPERTENSION [None]
